FAERS Safety Report 7441705-8 (Version None)
Quarter: 2011Q2

REPORT INFORMATION
  Report Type: 
  Country: None (occurrence: None)
  Receive Date: 20110428
  Receipt Date: 20110421
  Transmission Date: 20111010
  Serious: Yes (Hospitalization)
  Sender: FDA-Public Use
  Company Number: DE-B.I. PHARMACEUTICALS,INC./RIDGEFIELD-2011-DE-02649DE

PATIENT
  Age: 74 Year
  Sex: Female
  Weight: 73 kg

DRUGS (12)
  1. PRADAXA [Suspect]
     Indication: THROMBOSIS PROPHYLAXIS
     Dosage: 110 MG
     Route: 048
     Dates: start: 20100120, end: 20100120
  2. VOMEX A [Concomitant]
     Indication: PROCEDURAL NAUSEA
     Dosage: 1 ANZ
     Route: 042
     Dates: start: 20100120, end: 20100120
  3. TRAMAL LONG [Concomitant]
     Indication: PAIN
     Route: 048
     Dates: start: 20100121, end: 20100121
  4. PRADAXA [Suspect]
     Dosage: 220 MG
     Route: 048
     Dates: start: 20100121, end: 20100122
  5. DIPIDOLOR [Concomitant]
     Indication: PAIN
     Dosage: 7.5 MG
     Route: 058
     Dates: start: 20100120, end: 20100120
  6. PANTOZOL [Suspect]
     Indication: PROPHYLAXIS AGAINST GASTROINTESTINAL ULCER
     Dosage: 40 MG
     Route: 042
     Dates: start: 20100120, end: 20100120
  7. ZOFRAN [Concomitant]
     Indication: PROCEDURAL NAUSEA
     Dosage: 2 ANZ
     Route: 042
     Dates: start: 20100120, end: 20100120
  8. ARCOXIA [Concomitant]
     Indication: PAIN
     Dosage: 90 MG
     Route: 048
     Dates: start: 20100120, end: 20100123
  9. OMEPRAZOLE [Suspect]
     Indication: PROPHYLAXIS AGAINST GASTROINTESTINAL ULCER
     Dosage: 40 MG
     Route: 048
     Dates: end: 20100203
  10. PANTOPRAZOLE SODIUM [Concomitant]
     Indication: PROPHYLAXIS AGAINST GASTROINTESTINAL ULCER
     Dosage: 40 MG
     Route: 048
     Dates: start: 20100123, end: 20100125
  11. BERLOSIN [Concomitant]
     Indication: PAIN
     Dosage: 3 G
     Route: 042
     Dates: start: 20100120, end: 20100120
  12. DORMO-PUREN [Concomitant]
     Indication: INSOMNIA
     Route: 048
     Dates: start: 20100121, end: 20100121

REACTIONS (1)
  - PULMONARY EMBOLISM [None]
